FAERS Safety Report 7832126-4 (Version None)
Quarter: 2011Q4

REPORT INFORMATION
  Report Type: 
  Country: None (occurrence: None)
  Receive Date: 20111022
  Receipt Date: 20111007
  Transmission Date: 20120403
  Serious: Yes (Other)
  Sender: FDA-Public Use
  Company Number: US-BAYER-2011-050276

PATIENT
  Age: 43 Year
  Sex: Female

DRUGS (2)
  1. YASMIN [Suspect]
     Dosage: UNK
     Dates: start: 20021111, end: 20031101
  2. YASMIN [Suspect]
     Indication: CONTRACEPTION
     Dosage: UNK
     Dates: start: 20020201, end: 20020301

REACTIONS (4)
  - EMOTIONAL DISTRESS [None]
  - CEREBROVASCULAR ACCIDENT [None]
  - INJURY [None]
  - PAIN [None]
